FAERS Safety Report 5649891-7 (Version None)
Quarter: 2008Q1

REPORT INFORMATION
  Report Type: 
  Country: None (occurrence: None)
  Receive Date: 20080222
  Receipt Date: 20080207
  Transmission Date: 20080703
  Serious: Yes (Other)
  Sender: FDA-Public Use
  Company Number: TRP_01062_2008

PATIENT
  Sex: Female
  Weight: 78.0187 kg

DRUGS (10)
  1. INFERGEN [Suspect]
     Indication: HEPATITIS C
     Dosage: 15 ?G QD SUBCUTANEOUS,(15 ?G QD SUBCUTANEOUS)
     Route: 058
     Dates: start: 20060310, end: 20060405
  2. INFERGEN [Suspect]
     Indication: HEPATITIS C
     Dosage: 15 ?G QD SUBCUTANEOUS,(15 ?G QD SUBCUTANEOUS)
     Route: 058
     Dates: start: 20060101, end: 20060706
  3. RIBAVIRIN [Suspect]
     Indication: HEPATITIS C
     Dosage: 600 MG; 200MG QAM AND 400 MG QPM, 200 MG TID ORAL
     Route: 048
     Dates: start: 20060101, end: 20060706
  4. RIBAVIRIN [Suspect]
     Indication: HEPATITIS C
     Dosage: 600 MG; 200MG QAM AND 400 MG QPM, 200 MG TID ORAL
     Route: 048
     Dates: start: 20060310
  5. HYDROCHLOROTHIAZIDE [Concomitant]
  6. AVAPRO [Concomitant]
  7. PROCRIT [Concomitant]
  8. IRON [Concomitant]
  9. SILYMARIN [Concomitant]
  10. 'AVAPRIL' [Concomitant]

REACTIONS (9)
  - BLOOD IRON INCREASED [None]
  - FATIGUE [None]
  - HAEMOLYTIC ANAEMIA [None]
  - HEADACHE [None]
  - PAIN [None]
  - PYREXIA [None]
  - STRESS [None]
  - TRANSFUSION REACTION [None]
  - WEIGHT DECREASED [None]
